FAERS Safety Report 14121151 (Version 1)
Quarter: 2017Q4

REPORT INFORMATION
  Report Type: Report from Study
  Country: UA (occurrence: UA)
  Receive Date: 20171024
  Receipt Date: 20171024
  Transmission Date: 20180321
  Serious: Yes (Other)
  Sender: FDA-Public Use
  Company Number: UA-TEVA-817883ISR

PATIENT
  Age: 68 Year
  Sex: Female

DRUGS (2)
  1. VAZAR [Suspect]
     Active Substance: VALSARTAN
     Dosage: 160 MILLIGRAM DAILY;
     Route: 065
  2. VAZAR [Suspect]
     Active Substance: VALSARTAN
     Dosage: 80 MILLIGRAM DAILY;
     Route: 065

REACTIONS (1)
  - Convulsions local [Recovered/Resolved]
